FAERS Safety Report 25831008 (Version 1)
Quarter: 2025Q3

REPORT INFORMATION
  Report Type: Spontaneous
  Country: EU (occurrence: EU)
  Receive Date: 20250922
  Receipt Date: 20250922
  Transmission Date: 20251020
  Serious: Yes (Hospitalization)
  Sender: AUROBINDO
  Company Number: EU-AEMPS-1749884

PATIENT
  Age: 85 Year
  Sex: Male

DRUGS (1)
  1. CARVEDILOL [Suspect]
     Active Substance: CARVEDILOL
     Indication: Atrial fibrillation
     Route: 048
     Dates: start: 202507

REACTIONS (2)
  - Bradycardia [Unknown]
  - Unadjusted dose administered [Unknown]

NARRATIVE: CASE EVENT DATE: 20250701
